FAERS Safety Report 5822952-5 (Version None)
Quarter: 2008Q3

REPORT INFORMATION
  Report Type: 
  Country: None (occurrence: None)
  Receive Date: 20080725
  Receipt Date: 20080717
  Transmission Date: 20090109
  Serious: Yes (Hospitalization)
  Sender: FDA-Public Use
  Company Number: JP-JNJFOC-20080704305

PATIENT
  Sex: Female
  Weight: 47 kg

DRUGS (9)
  1. REMICADE [Suspect]
     Indication: RHEUMATOID ARTHRITIS
     Route: 042
  2. RHEUMATREX [Suspect]
     Indication: RHEUMATOID ARTHRITIS
     Route: 048
  3. ISONIAZID [Concomitant]
     Indication: PROPHYLAXIS
     Route: 048
  4. CELECOX [Concomitant]
     Indication: RHEUMATOID ARTHRITIS
     Route: 048
  5. PARIET [Concomitant]
     Indication: GASTRIC ULCER
     Route: 048
  6. APLACE [Concomitant]
     Indication: GASTRITIS
     Route: 048
  7. SUCRALFATE [Concomitant]
     Indication: GASTRIC ULCER
     Route: 048
  8. SINGULAIR [Concomitant]
     Indication: RHINITIS ALLERGIC
     Route: 048
  9. ALENDRONATE SODIUM [Concomitant]
     Indication: OSTEOPOROSIS
     Route: 048

REACTIONS (1)
  - HERPES ZOSTER [None]
